FAERS Safety Report 19583948 (Version 1)
Quarter: 2021Q3

REPORT INFORMATION
  Report Type: Spontaneous
  Country: FR (occurrence: FR)
  Receive Date: 20210720
  Receipt Date: 20210720
  Transmission Date: 20211014
  Serious: Yes (Death, Other)
  Sender: FDA-Public Use
  Company Number: FR-PFIZER INC-2021839397

PATIENT
  Age: 78 Year
  Sex: Male

DRUGS (9)
  1. DIFFU K [Concomitant]
     Active Substance: POTASSIUM CHLORIDE
  2. VYNDAQEL [Suspect]
     Active Substance: TAFAMIDIS MEGLUMINE
     Indication: CARDIAC AMYLOIDOSIS
     Dosage: 20 MG, DAILY
  3. AMIODARONE [Concomitant]
     Active Substance: AMIODARONE
  4. PREGABALIN. [Concomitant]
     Active Substance: PREGABALIN
  5. ELIQUIS [Concomitant]
     Active Substance: APIXABAN
     Dosage: 2.5 X 2
  6. TRULICITY [Concomitant]
     Active Substance: DULAGLUTIDE
  7. FUROSEMIDE. [Concomitant]
     Active Substance: FUROSEMIDE
     Dosage: 500 : 1/2
  8. INSULIN [Concomitant]
     Active Substance: INSULIN NOS
  9. MOVICOL APELSIN [Concomitant]
     Active Substance: POLYETHYLENE GLYCOL 3350\POTASSIUM CHLORIDE\SODIUM BICARBONATE\SODIUM CHLORIDE

REACTIONS (2)
  - Cardiac failure chronic [Unknown]
  - Death [Fatal]

NARRATIVE: CASE EVENT DATE: 202106
